FAERS Safety Report 19024598 (Version 1)
Quarter: 2021Q1

REPORT INFORMATION
  Report Type: Spontaneous
  Country: GB (occurrence: GB)
  Receive Date: 20210318
  Receipt Date: 20210318
  Transmission Date: 20210420
  Serious: Yes (Disabling, Other)
  Sender: FDA-Public Use
  Company Number: GB-DEXPHARM-20210329

PATIENT
  Age: 40 Year
  Sex: Female
  Weight: 51.71 kg

DRUGS (2)
  1. OMEPRAZOLE. [Suspect]
     Active Substance: OMEPRAZOLE
     Indication: ILL-DEFINED DISORDER
     Dosage: SWITCH OMEPRAZOLE 40MG THEN WENT UP TO 60MG WENT UP TO 80MG FOR ONLY 6 DAYS + STOPPED SIDE EFFECTS
     Route: 048
     Dates: start: 20201004, end: 20201025
  2. LANSOPRAZOLE. [Suspect]
     Active Substance: LANSOPRAZOLE
     Indication: ILL-DEFINED DISORDER
     Dosage: 30MG LANSOPRAZOLE AND WENT UP TO 60MG FOR 1 DAY AND HAD SIDE EFFECTS CHANGED TO OMEPRAZOLE
     Route: 048
     Dates: start: 20200907, end: 20201003

REACTIONS (3)
  - Pain [Unknown]
  - Paraesthesia [Unknown]
  - Medication error [Unknown]
